FAERS Safety Report 9493020 (Version 1)
Quarter: 2013Q3

REPORT INFORMATION
  Report Type: Spontaneous
  Country: US (occurrence: US)
  Receive Date: 20130902
  Receipt Date: 20130902
  Transmission Date: 20140515
  Serious: No
  Sender: FDA-Public Use
  Company Number: US-BIOGENIDEC-2013BI081770

PATIENT
  Sex: Male

DRUGS (7)
  1. AVONEX [Suspect]
     Indication: MULTIPLE SCLEROSIS
     Route: 030
     Dates: start: 20111105, end: 201212
  2. AVONEX [Suspect]
     Indication: MULTIPLE SCLEROSIS
     Route: 030
     Dates: start: 201212
  3. ATENOLOL [Concomitant]
     Indication: HYPERTENSION
  4. AMLODIPINE [Concomitant]
     Indication: HYPERTENSION
  5. VITAMIN B6 - OTC [Concomitant]
  6. VITAMIN B12 - OTC [Concomitant]
  7. POTASSIUM - OTC [Concomitant]

REACTIONS (3)
  - Chills [Recovered/Resolved]
  - Anxiety [Recovered/Resolved]
  - Mood swings [Recovered/Resolved]
